FAERS Safety Report 20576601 (Version 1)
Quarter: 2022Q1

REPORT INFORMATION
  Report Type: Spontaneous
  Country: DE (occurrence: DE)
  Receive Date: 20220310
  Receipt Date: 20220310
  Transmission Date: 20220423
  Serious: Yes (Hospitalization, Other)
  Sender: FDA-Public Use
  Company Number: DE-CELLTRION INC.-2022DE002083

PATIENT

DRUGS (5)
  1. RITUXIMAB [Suspect]
     Active Substance: RITUXIMAB
     Indication: Skin disorder
     Dosage: 2X 1 G, (6 MO + 14 MONTHS AFTER AHSCT)
     Route: 065
  2. CYCLOPHOSPHAMIDE [Suspect]
     Active Substance: CYCLOPHOSPHAMIDE
     Indication: Immunosuppression
     Route: 065
  3. AZATHIOPRINE [Suspect]
     Active Substance: AZATHIOPRINE
     Indication: Immunosuppression
     Route: 065
  4. TOCILIZUMAB [Suspect]
     Active Substance: TOCILIZUMAB
     Indication: Skin disorder
     Dosage: 162 MG (6 MONTHS AFTER AHSCT; INTAKE DURATION: 1 MONTH)
     Route: 058
  5. METHOTREXATE [Suspect]
     Active Substance: METHOTREXATE
     Indication: Skin disorder
     Dosage: 15 MG (5 MONTHS AFTER AHSCT; INTAKE DURATION: 2 MONTHS)
     Route: 058

REACTIONS (3)
  - Pneumocystis jirovecii pneumonia [Unknown]
  - Oesophageal candidiasis [Unknown]
  - Off label use [Unknown]
